FAERS Safety Report 25232826 (Version 3)
Quarter: 2025Q3

REPORT INFORMATION
  Report Type: Spontaneous
  Country: US (occurrence: US)
  Receive Date: 20250424
  Receipt Date: 20250912
  Transmission Date: 20251021
  Serious: No
  Sender: ROCHE
  Company Number: US-ROCHE-10000265059

PATIENT
  Age: 25 Year
  Sex: Male

DRUGS (3)
  1. HEMLIBRA [Suspect]
     Active Substance: EMICIZUMAB-KXWH
     Indication: Factor VIII deficiency
     Dosage: STRENGTH: 105MG/0.7ML
     Route: 058
     Dates: start: 202305
  2. HEMLIBRA [Suspect]
     Active Substance: EMICIZUMAB-KXWH
     Dosage: STRENGTH: 105MG/0.7ML
     Route: 058
     Dates: start: 202305
  3. ADVATE [Concomitant]
     Active Substance: ANTIHEMOPHILIC FACTOR, HUMAN RECOMBINANT

REACTIONS (4)
  - Injury [Unknown]
  - Haemorrhage [Unknown]
  - Haemorrhage [Unknown]
  - Haemorrhage [Unknown]

NARRATIVE: CASE EVENT DATE: 20250413
